FAERS Safety Report 8560677-6 (Version None)
Quarter: 2012Q3

REPORT INFORMATION
  Report Type: 
  Country: None (occurrence: None)
  Receive Date: 20120802
  Receipt Date: 20120725
  Transmission Date: 20120928
  Serious: Yes (Hospitalization)
  Sender: FDA-Public Use
  Company Number: GB-TEVA-350286ISR

PATIENT
  Sex: Male

DRUGS (6)
  1. AMITRIPTLINE HYDROCHLORIDE TAB [Concomitant]
     Route: 048
  2. GABAPENTIN [Concomitant]
     Route: 048
  3. LANSOPRAZOLE [Concomitant]
     Route: 048
  4. TRAMADOL HCL [Concomitant]
     Route: 048
  5. SIMVASTATIN [Concomitant]
     Route: 048
  6. CLARITHROMYCIN [Suspect]
     Indication: LOWER RESPIRATORY TRACT INFECTION
     Route: 048
     Dates: start: 20120509, end: 20120512

REACTIONS (5)
  - DISORIENTATION [None]
  - VISION BLURRED [None]
  - CONFUSIONAL STATE [None]
  - AGITATION [None]
  - HEADACHE [None]
